FAERS Safety Report 20751744 (Version 6)
Quarter: 2024Q3

REPORT INFORMATION
  Report Type: Spontaneous
  Country: DK (occurrence: DK)
  Receive Date: 20220426
  Receipt Date: 20240722
  Transmission Date: 20241017
  Serious: Yes (Hospitalization, Other)
  Sender: MYLAN
  Company Number: DK-GLAXOSMITHKLINE-DK2022GSK056931

PATIENT
  Age: 24 Year
  Sex: Female

DRUGS (8)
  1. BUDESONIDE [Suspect]
     Active Substance: BUDESONIDE
     Indication: Asthma
     Dosage: 1400 MICROGRAM, QD (1400 ?G, 1D)
     Route: 055
  2. FLUTICASONE FUROATE [Suspect]
     Active Substance: FLUTICASONE FUROATE
     Indication: Sinusitis
     Dosage: 2.5 MILLIGRAM, QD (2.5MG 1D)
     Route: 065
  3. FLUTICASONE FUROATE [Suspect]
     Active Substance: FLUTICASONE FUROATE
     Dosage: 7.5 MILLIGRAM, QD (7.5MG 1D)
     Route: 065
  4. FLUTICASONE FUROATE [Suspect]
     Active Substance: FLUTICASONE FUROATE
     Dosage: 37.5 MILLIGRAM, QD (37.5 MG, 1D)
     Route: 065
  5. FLUTICASONE FUROATE [Suspect]
     Active Substance: FLUTICASONE FUROATE
     Dosage: 55 MICROGRAM, QD (55 ?G, 1D, NASAL)
     Route: 045
  6. FLUTICASONE FUROATE [Suspect]
     Active Substance: FLUTICASONE FUROATE
     Dosage: MORE THAN OR EQUAL TO 50MG/DAY FOR 3 WEEKS ON 2 OCCASIONS
     Route: 065
  7. MOMETASONE FUROATE MONOHYDRATE [Suspect]
     Active Substance: MOMETASONE FUROATE MONOHYDRATE
     Indication: Dermatitis
     Dosage: QW (0.1 PERCENT, EUROPEAN STEROID GROUP III, ON HANDS, NECK, AND CHEST 3-7 TIMES/WK)
     Route: 061
  8. ESTROGENS [Concomitant]
     Active Substance: ESTROGENS
     Indication: Contraception
     Dosage: UNK
     Route: 048

REACTIONS (14)
  - Condition aggravated [Unknown]
  - Adrenal insufficiency [Not Recovered/Not Resolved]
  - Gait inability [Not Recovered/Not Resolved]
  - Adrenocortical insufficiency acute [Unknown]
  - Fatigue [Not Recovered/Not Resolved]
  - Tremor [Unknown]
  - Malaise [Unknown]
  - Loss of personal independence in daily activities [Unknown]
  - Asthenia [Unknown]
  - Weight decreased [Unknown]
  - Cold sweat [Unknown]
  - Infection [Unknown]
  - Nausea [Unknown]
  - Dizziness [Unknown]
